FAERS Safety Report 11672509 (Version 5)
Quarter: 2015Q4

REPORT INFORMATION
  Report Type: Spontaneous
  Country: JP (occurrence: JP)
  Receive Date: 20151028
  Receipt Date: 20151204
  Transmission Date: 20160304
  Serious: Yes (Death, Other)
  Sender: FDA-Public Use
  Company Number: PHJP2015JP018766

PATIENT
  Age: 17 Year
  Sex: Female

DRUGS (3)
  1. IMATINIB [Suspect]
     Active Substance: IMATINIB
     Indication: PERIPHERAL T-CELL LYMPHOMA UNSPECIFIED
     Route: 065
  2. ARRANON [Suspect]
     Active Substance: NELARABINE
     Indication: NON-HODGKIN^S LYMPHOMA
     Dosage: 1500 MG, UNK
     Route: 042
     Dates: start: 20140324
  3. CYTARABINE. [Suspect]
     Active Substance: CYTARABINE
     Indication: PERIPHERAL T-CELL LYMPHOMA UNSPECIFIED
     Route: 065

REACTIONS (6)
  - Disseminated intravascular coagulation [Fatal]
  - Product use issue [Unknown]
  - Neuralgia [Recovering/Resolving]
  - Drug ineffective [Unknown]
  - Bone marrow failure [Fatal]
  - Sepsis [Recovering/Resolving]
